FAERS Safety Report 18693510 (Version 3)
Quarter: 2021Q1

REPORT INFORMATION
  Report Type: Spontaneous
  Country: US (occurrence: US)
  Receive Date: 20210104
  Receipt Date: 20210222
  Transmission Date: 20210419
  Serious: No
  Sender: FDA-Public Use
  Company Number: US-ASTRAZENECA-2020SF73711

PATIENT
  Age: 51 Year
  Sex: Female
  Weight: 93 kg

DRUGS (1)
  1. BYDUREON BCISE [Suspect]
     Active Substance: EXENATIDE
     Indication: DIABETES MELLITUS
     Route: 058
     Dates: start: 201703

REACTIONS (4)
  - Device mechanical issue [Unknown]
  - Incorrect dose administered [Unknown]
  - Device leakage [Unknown]
  - Injection site discomfort [Unknown]
